FAERS Safety Report 5466837-5 (Version None)
Quarter: 2007Q3

REPORT INFORMATION
  Report Type: 
  Country: None (occurrence: None)
  Receive Date: 20070920
  Receipt Date: 20070910
  Transmission Date: 20080115
  Serious: Yes (Hospitalization, Other)
  Sender: FDA-Public Use
  Company Number: 2007SP014601

PATIENT
  Age: 61 Year
  Sex: Male
  Weight: 50 kg

DRUGS (4)
  1. PEG-INTRON [Suspect]
     Indication: HEPATITIS C
     Dosage: 80 MCG;QW;SC
     Route: 058
     Dates: start: 20070617, end: 20070711
  2. REBETOL [Suspect]
     Indication: HEPATITIS C
     Dosage: 600 MG;QD;PO
     Route: 048
     Dates: start: 20070627, end: 20070717
  3. ASPIRIN [Concomitant]
  4. INSULIN [Concomitant]

REACTIONS (5)
  - ANOREXIA [None]
  - DISORIENTATION [None]
  - ENCEPHALOPATHY [None]
  - NERVOUS SYSTEM DISORDER [None]
  - NYSTAGMUS [None]
